FAERS Safety Report 9349807 (Version 2)
Quarter: 2013Q3

REPORT INFORMATION
  Report Type: Spontaneous
  Country: US (occurrence: US)
  Receive Date: 20130614
  Receipt Date: 20130821
  Transmission Date: 20140515
  Serious: No
  Sender: FDA-Public Use
  Company Number: US-009507513-1306USA006512

PATIENT
  Sex: Female
  Weight: 62.13 kg

DRUGS (9)
  1. CLARITIN REDITABS [Suspect]
     Indication: PARANASAL SINUS HYPERSECRETION
     Dosage: UNK, UNKNOWN
     Route: 048
     Dates: start: 20130605, end: 20130608
  2. GLUCOSAMINE [Concomitant]
     Indication: OSTEOARTHRITIS
     Dosage: UNK
     Route: 048
  3. SYNTHROID [Concomitant]
     Indication: HYPOTHYROIDISM
     Dosage: UNK
     Route: 048
  4. METOPROLOL [Concomitant]
     Indication: HEART RATE IRREGULAR
     Dosage: UNK
     Route: 048
  5. LISINOPRIL [Concomitant]
     Indication: HYPERTENSION
     Dosage: UNK
     Route: 048
  6. PRAVASTATIN SODIUM [Concomitant]
     Indication: BLOOD CHOLESTEROL INCREASED
     Dosage: UNK
     Route: 048
  7. CALCIUM (UNSPECIFIED) [Concomitant]
     Indication: OSTEOPOROSIS
     Dosage: UNK
     Route: 048
  8. RECLAST [Concomitant]
     Indication: OSTEOPOROSIS
     Dosage: UNK
     Route: 048
  9. VITAMIN D (UNSPECIFIED) [Concomitant]
     Indication: OSTEOPOROSIS
     Dosage: UNK
     Route: 048

REACTIONS (1)
  - Drug ineffective [Unknown]
